FAERS Safety Report 26025473 (Version 1)
Quarter: 2025Q4

REPORT INFORMATION
  Report Type: Spontaneous
  Country: US (occurrence: US)
  Receive Date: 20251111
  Receipt Date: 20251111
  Transmission Date: 20260117
  Serious: Yes (Other)
  Sender: BLUEPRINT MEDICINES
  Company Number: US-Blueprint Medicines Corporation-2025-AER-02407

PATIENT
  Sex: Female

DRUGS (4)
  1. AYVAKIT [Suspect]
     Active Substance: AVAPRITINIB
     Indication: Indolent systemic mastocytosis
     Route: 065
  2. AYVAKIT [Suspect]
     Active Substance: AVAPRITINIB
     Route: 065
  3. AYVAKIT [Suspect]
     Active Substance: AVAPRITINIB
     Route: 065
  4. OMALIZUMAB [Concomitant]
     Active Substance: OMALIZUMAB
     Indication: Product used for unknown indication
     Route: 065

REACTIONS (2)
  - Anaphylactic reaction [Unknown]
  - Off label use [Unknown]
